FAERS Safety Report 19196888 (Version 3)
Quarter: 2022Q1

REPORT INFORMATION
  Report Type: Report from Study
  Country: US (occurrence: US)
  Receive Date: 20210430
  Receipt Date: 20220224
  Transmission Date: 20220423
  Serious: Yes (Other)
  Sender: FDA-Public Use
  Company Number: US-ABBVIE-21K-163-3883559-00

PATIENT
  Age: 50 Year
  Sex: Male

DRUGS (3)
  1. RINVOQ [Suspect]
     Active Substance: UPADACITINIB
     Indication: Rheumatoid arthritis
     Route: 048
  2. RINVOQ [Suspect]
     Active Substance: UPADACITINIB
     Route: 048
  3. RINVOQ [Suspect]
     Active Substance: UPADACITINIB
     Route: 048

REACTIONS (7)
  - Carpal tunnel syndrome [Recovering/Resolving]
  - Unevaluable event [Unknown]
  - Spinal fusion surgery [Unknown]
  - Exostosis [Unknown]
  - COVID-19 [Unknown]
  - Back pain [Unknown]
  - Exostosis [Unknown]

NARRATIVE: CASE EVENT DATE: 20210401
